FAERS Safety Report 7035683-3 (Version None)
Quarter: 2010Q4

REPORT INFORMATION
  Report Type: 
  Country: None (occurrence: None)
  Receive Date: 20101008
  Receipt Date: 20100928
  Transmission Date: 20110411
  Serious: Yes (Hospitalization)
  Sender: FDA-Public Use
  Company Number: JP-PFIZER INC-2010122696

PATIENT
  Age: 82 Year
  Sex: Female

DRUGS (4)
  1. LYRICA [Suspect]
     Dosage: 75 MG, 2X/DAY
     Route: 048
     Dates: start: 20100918, end: 20100918
  2. VITAMEDIN CAPSULE [Concomitant]
  3. NEUROTROPIN [Concomitant]
  4. DEPAS [Concomitant]
     Dosage: 0.5 MG, 2X/DAY
     Route: 048
     Dates: start: 20100918, end: 20100918

REACTIONS (3)
  - PARALYSIS [None]
  - SOMNOLENCE [None]
  - VISION BLURRED [None]
